FAERS Safety Report 12473741 (Version 1)
Quarter: 2016Q2

REPORT INFORMATION
  Report Type: Spontaneous
  Country: US (occurrence: US)
  Receive Date: 20160616
  Receipt Date: 20160616
  Transmission Date: 20160815
  Serious: No
  Sender: FDA-Public Use
  Company Number: US-ELI_LILLY_AND_COMPANY-US201605011239

PATIENT
  Sex: Female

DRUGS (4)
  1. TRULICITY [Suspect]
     Active Substance: DULAGLUTIDE
     Indication: TYPE 2 DIABETES MELLITUS
     Dosage: 1.5 MG, UNKNOWN
     Route: 065
     Dates: start: 201602
  2. TRULICITY [Suspect]
     Active Substance: DULAGLUTIDE
     Indication: GLUCOSE TOLERANCE IMPAIRED
  3. AMLODIPINE [Concomitant]
     Active Substance: AMLODIPINE BESYLATE
     Dosage: 5 MG, EACH EVENING
     Route: 065
  4. METOPROLOL. [Concomitant]
     Active Substance: METOPROLOL
     Dosage: 100 MG, EACH MORNING
     Route: 065

REACTIONS (1)
  - Dyspnoea [Unknown]

NARRATIVE: CASE EVENT DATE: 201602
